FAERS Safety Report 9224218 (Version 1)
Quarter: 2013Q2

REPORT INFORMATION
  Report Type: Spontaneous
  Country: US (occurrence: US)
  Receive Date: 20130411
  Receipt Date: 20130411
  Transmission Date: 20140414
  Serious: No
  Sender: FDA-Public Use
  Company Number: US-PFIZER INC-2013113950

PATIENT
  Age: 13 Year
  Sex: Female

DRUGS (2)
  1. QUILLIVANT XR [Suspect]
     Indication: ATTENTION DEFICIT/HYPERACTIVITY DISORDER
     Dosage: 5 MG, UNK
  2. QUILLIVANT XR [Suspect]
     Dosage: 25 MG, UNK

REACTIONS (1)
  - Tachycardia [Unknown]
